FAERS Safety Report 4694101-0 (Version None)
Quarter: 2005Q2

REPORT INFORMATION
  Report Type: 
  Country: None (occurrence: None)
  Receive Date: 20050617
  Receipt Date: 20050603
  Transmission Date: 20051028
  Serious: Yes (Death)
  Sender: FDA-Public Use
  Company Number: 2005S1004366

PATIENT
  Age: 54 Year
  Sex: Male

DRUGS (3)
  1. CLOZAPINE [Suspect]
     Dosage: 200 MG; HS; PO
     Route: 048
     Dates: start: 20000201, end: 20050501
  2. CLOZAPINE [Suspect]
     Indication: SCHIZOPHRENIA
     Dosage: 25 MG; QAM; PO; 25 MG; HS; PO
     Route: 048
     Dates: start: 20000201, end: 20050501
  3. CLOZAPINE [Suspect]
     Indication: SCHIZOPHRENIA
     Dosage: 25 MG; QAM; PO; 25 MG; HS; PO
     Route: 048
     Dates: start: 20000201, end: 20050501

REACTIONS (1)
  - DEATH [None]
